FAERS Safety Report 14167635 (Version 1)
Quarter: 2017Q4

REPORT INFORMATION
  Report Type: Spontaneous
  Country: DE (occurrence: DE)
  Receive Date: 20171107
  Receipt Date: 20171107
  Transmission Date: 20180321
  Serious: Yes (Other)
  Sender: FDA-Public Use
  Company Number: DE-APOPHARMA USA, INC.-2016AP015207

PATIENT
  Age: 40 Year
  Sex: Female

DRUGS (3)
  1. ALKERAN [Suspect]
     Active Substance: MELPHALAN
     Dosage: UNK UNK, OTHER
     Route: 036
     Dates: start: 201307
  2. ALKERAN [Suspect]
     Active Substance: MELPHALAN
     Indication: METASTASES TO LIVER
     Dosage: 3.0 MG/KG, OTHER
     Route: 013
     Dates: start: 20130521
  3. HEPARIN [Concomitant]
     Active Substance: HEPARIN SODIUM
     Indication: ANTICOAGULANT THERAPY
     Route: 065

REACTIONS (2)
  - Neutropenia [Recovering/Resolving]
  - Leukopenia [Recovered/Resolved]

NARRATIVE: CASE EVENT DATE: 201307
